FAERS Safety Report 7939689-9 (Version None)
Quarter: 2011Q4

REPORT INFORMATION
  Report Type: 
  Country: None (occurrence: None)
  Receive Date: 20111125
  Receipt Date: 20111115
  Transmission Date: 20120403
  Serious: Yes (Hospitalization)
  Sender: FDA-Public Use
  Company Number: PHHY2011US50015

PATIENT
  Sex: Male
  Weight: 117.1 kg

DRUGS (21)
  1. EXJADE [Suspect]
     Indication: HAEMOCHROMATOSIS
     Dosage: 2250 MG, DAILY
     Route: 048
     Dates: start: 20110411
  2. EXJADE [Suspect]
     Indication: LYMPHOPROLIFERATIVE DISORDER
  3. FINASTERIDE [Concomitant]
  4. POTASSIUM CHLORIDE [Concomitant]
  5. EXJADE [Suspect]
     Indication: MAGNESIUM METABOLISM DISORDER
  6. LISINOPRIL [Concomitant]
     Dosage: 40 MG, BID
  7. AMLODIPINE [Concomitant]
     Dosage: 10 MG, DAILY
  8. SIMVASTATIN [Concomitant]
     Dosage: 80 MG, UNK
  9. CATAPRES-TTS-1 [Concomitant]
  10. VIDAZA [Concomitant]
     Indication: MYELODYSPLASTIC SYNDROME
  11. ALPRAZOLAM [Concomitant]
     Dosage: 1 MG, UNK
  12. BUMETANIDE [Concomitant]
     Dosage: 2 MG, BID
  13. HELIOX [Concomitant]
  14. PREDNISOLONE [Concomitant]
     Dosage: 20 MG, DAILY
     Route: 048
  15. GEMFIBROZIL [Concomitant]
     Dosage: 600 MG, BID
  16. DILTIAZEM HCL [Concomitant]
     Dosage: 240 MG, DAILY
  17. CARVEDILOL [Concomitant]
     Dosage: 25 MG, BID
     Route: 048
  18. MIRALAX [Concomitant]
     Dosage: 17 G, UNK
     Route: 048
  19. TERAZOSIN HCL [Concomitant]
  20. CLOBETASOL PROPIONATE [Concomitant]
  21. LANTUS [Concomitant]
     Dosage: 66 U, BID

REACTIONS (16)
  - RENAL FAILURE ACUTE [None]
  - PULMONARY CONGESTION [None]
  - FLUID OVERLOAD [None]
  - ANAEMIA [None]
  - PYREXIA [None]
  - HYPOGLYCAEMIA [None]
  - FATIGUE [None]
  - DYSPNOEA [None]
  - PNEUMONIA [None]
  - LEUKOPENIA [None]
  - CARDIOMEGALY [None]
  - ACUTE RESPIRATORY FAILURE [None]
  - HYPOXIA [None]
  - ASTHENIA [None]
  - INTERSTITIAL LUNG DISEASE [None]
  - THROMBOCYTOPENIA [None]
